FAERS Safety Report 22307356 (Version 2)
Quarter: 2023Q2

REPORT INFORMATION
  Report Type: Spontaneous
  Country: DE (occurrence: DE)
  Receive Date: 20230511
  Receipt Date: 20230519
  Transmission Date: 20230721
  Serious: Yes (Other)
  Sender: FDA-Public Use
  Company Number: ALC2023DE002329

PATIENT

DRUGS (4)
  1. LATANOPROST\NETARSUDIL MESYLATE [Suspect]
     Active Substance: LATANOPROST\NETARSUDIL MESYLATE
     Indication: Glaucoma
     Dosage: UNK UNK, QD (USED 2 TIMES)
     Route: 047
     Dates: start: 20230419
  2. DORZOLAMIDE HYDROCHLORIDE [Suspect]
     Active Substance: DORZOLAMIDE HYDROCHLORIDE
     Indication: Glaucoma
     Dosage: UNK UNK, QD (ONCE DAILY IN THE EVENING) (2% SD) SINCE 2,5 YEARS
     Route: 047
     Dates: start: 2020
  3. TAFLUPROST\TIMOLOL [Suspect]
     Active Substance: TAFLUPROST\TIMOLOL
     Indication: Glaucoma
     Dosage: UNK UNK, QD (0.0015%/0.5% SD)
     Route: 047
  4. LATANOPROST [Concomitant]
     Active Substance: LATANOPROST
     Indication: Product used for unknown indication
     Dosage: UNK
     Route: 065

REACTIONS (15)
  - Condition aggravated [Recovered/Resolved]
  - Ocular hypertension [Recovered/Resolved]
  - Illness [Recovered/Resolved]
  - Diarrhoea [Recovered/Resolved]
  - Feeling drunk [Recovered/Resolved]
  - Hypotension [Not Recovered/Not Resolved]
  - Drug ineffective [Unknown]
  - Multiple use of single-use product [Unknown]
  - Off label use [Unknown]
  - Sluggishness [Not Recovered/Not Resolved]
  - Off label use [Unknown]
  - Lethargy [Not Recovered/Not Resolved]
  - Prescribed underdose [Unknown]
  - Dizziness [Unknown]
  - Fatigue [Recovered/Resolved]

NARRATIVE: CASE EVENT DATE: 20230401
